FAERS Safety Report 10711851 (Version 3)
Quarter: 2015Q1

REPORT INFORMATION
  Report Type: Spontaneous
  Country: HU (occurrence: HU)
  Receive Date: 20150114
  Receipt Date: 20150202
  Transmission Date: 20150721
  Serious: Yes (Death, Hospitalization)
  Sender: FDA-Public Use
  Company Number: HU-PFIZER INC-2014329183

PATIENT
  Age: 72 Year
  Sex: Male

DRUGS (8)
  1. INLYTA [Suspect]
     Active Substance: AXITINIB
     Indication: RENAL CANCER METASTATIC
     Dosage: 1 TABLET, 1X/DAY
     Route: 048
     Dates: start: 20141117
  2. ATORVASTATIN [Concomitant]
     Active Substance: ATORVASTATIN
  3. BETALOC [Concomitant]
     Active Substance: METOPROLOL TARTRATE
  4. TRITACE [Concomitant]
     Active Substance: RAMIPRIL
  5. DIAPHYLLIN [Concomitant]
  6. AMARYL [Concomitant]
     Active Substance: GLIMEPIRIDE
  7. MERCKFORMIN [Concomitant]
     Active Substance: METFORMIN HYDROCHLORIDE
  8. VEROSPIRON [Concomitant]
     Active Substance: SPIRONOLACTONE

REACTIONS (8)
  - Death [Fatal]
  - Heart rate increased [Recovered/Resolved]
  - Fatigue [Not Recovered/Not Resolved]
  - Dyspnoea exertional [Recovered/Resolved]
  - Ascites [Unknown]
  - Asthenia [Not Recovered/Not Resolved]
  - Abdominal distension [Recovered/Resolved]
  - Nausea [Recovered/Resolved]

NARRATIVE: CASE EVENT DATE: 2014
